FAERS Safety Report 15065623 (Version 1)
Quarter: 2018Q3

REPORT INFORMATION
  Report Type: Spontaneous
  Country: CH (occurrence: CH)
  Receive Date: 20180626
  Receipt Date: 20180626
  Transmission Date: 20181010
  Serious: Yes (Hospitalization)
  Sender: FDA-Public Use
  Company Number: CH-CHEPLA-C20180717

PATIENT
  Age: 55 Year
  Sex: Female
  Weight: 98 kg

DRUGS (8)
  1. LODINE [Suspect]
     Active Substance: ETODOLAC
     Indication: BACK PAIN
     Dosage: 600 MG P.O. PER DAY
     Route: 048
  2. SIRDALUD [Concomitant]
     Active Substance: TIZANIDINE
     Indication: BACK PAIN
     Dosage: 6 MG P.O. PER DAY
     Route: 048
  3. CRESTOR [Suspect]
     Active Substance: ROSUVASTATIN CALCIUM
     Indication: HYPERLIPIDAEMIA
     Dosage: 10 MG P.O. PER DAY
     Route: 048
  4. ESOMEP [Concomitant]
     Active Substance: ESOMEPRAZOLE
     Indication: PRODUCT USED FOR UNKNOWN INDICATION
     Dosage: 80 MG P.O. PER DAY
     Route: 048
  5. RASILEZ HCT [Concomitant]
     Active Substance: ALISKIREN\HYDROCHLOROTHIAZIDE
     Indication: HYPERTENSION
     Dosage: 300/25 MG P.O. PER DAY
     Route: 048
  6. METO ZEROK [Concomitant]
     Active Substance: METOPROLOL SUCCINATE
     Indication: HYPERTENSION
     Dosage: 100 MG P.O. PER DAY
     Route: 048
  7. ORLISTAT. [Suspect]
     Active Substance: ORLISTAT
     Indication: OBESITY
     Dosage: 120 MG, P.O. PER DAY
     Route: 048
  8. CIPRALEX [Concomitant]
     Active Substance: ESCITALOPRAM OXALATE
     Indication: DEPRESSION
     Dosage: 20 MG P.O. PER DAY
     Route: 048

REACTIONS (4)
  - Anaemia [Recovered/Resolved]
  - Haematoma [Recovered/Resolved]
  - Urogenital haemorrhage [Recovered/Resolved]
  - Epistaxis [Recovered/Resolved]
